FAERS Safety Report 5458040-X (Version None)
Quarter: 2007Q3

REPORT INFORMATION
  Report Type: 
  Country: None (occurrence: None)
  Receive Date: 20070919
  Receipt Date: 20070910
  Transmission Date: 20080115
  Serious: Yes (Hospitalization)
  Sender: FDA-Public Use
  Company Number: PHHO2007DE14927

PATIENT
  Age: 76 Year
  Sex: Female

DRUGS (7)
  1. METOHEXAL [Concomitant]
  2. GODAMED [Concomitant]
  3. INEGY [Concomitant]
  4. TETRAZEPAM [Concomitant]
  5. PAYNOCIL [Concomitant]
  6. IBUPROFEN TABLETS [Concomitant]
  7. STALEVO 100 [Suspect]
     Indication: PARKINSON'S DISEASE
     Route: 048
     Dates: start: 20070621

REACTIONS (3)
  - DIVERTICULUM [None]
  - GASTRITIS [None]
  - NAUSEA [None]
